FAERS Safety Report 20362048 (Version 2)
Quarter: 2022Q3

REPORT INFORMATION
  Report Type: Spontaneous
  Country: CA (occurrence: CA)
  Receive Date: 20220121
  Receipt Date: 20220713
  Transmission Date: 20221027
  Serious: Yes (Hospitalization, Other)
  Sender: FDA-Public Use
  Company Number: CA-PFIZER INC-202200078842

PATIENT
  Age: 26 Year
  Sex: Male

DRUGS (19)
  1. PHENYTOIN SODIUM [Suspect]
     Active Substance: PHENYTOIN SODIUM
     Indication: Seizure
     Dosage: UNK
  2. CARBAMAZEPINE [Suspect]
     Active Substance: CARBAMAZEPINE
     Indication: Seizure
     Dosage: UNK
  3. CLOBAZAM [Suspect]
     Active Substance: CLOBAZAM
     Indication: Seizure
     Dosage: UNK
  4. CLONAZEPAM [Suspect]
     Active Substance: CLONAZEPAM
     Indication: Seizure
     Dosage: UNK
     Route: 065
  5. CLONAZEPAM [Suspect]
     Active Substance: CLONAZEPAM
     Indication: Seizure
     Dosage: UNK
     Route: 065
  6. CLONAZEPAM [Suspect]
     Active Substance: CLONAZEPAM
     Dosage: UNK
     Route: 065
  7. FYCOMPA [Suspect]
     Active Substance: PERAMPANEL
     Indication: Seizure
     Dosage: 4 MG, 1X/DAY
     Route: 048
  8. LACOSAMIDE [Suspect]
     Active Substance: LACOSAMIDE
     Indication: Seizure
     Dosage: 400 MG, 1X/DAY
  9. LAMOTRIGINE [Suspect]
     Active Substance: LAMOTRIGINE
     Indication: Seizure
     Dosage: UNK
  10. LEVETIRACETAM [Suspect]
     Active Substance: LEVETIRACETAM
     Indication: Seizure
     Dosage: UNK
     Route: 065
  11. LEVETIRACETAM [Suspect]
     Active Substance: LEVETIRACETAM
     Indication: Seizure
     Dosage: UNK
     Route: 065
  12. LEVETIRACETAM [Suspect]
     Active Substance: LEVETIRACETAM
     Dosage: UNK
     Route: 065
  13. PERAMPANEL [Suspect]
     Active Substance: PERAMPANEL
     Indication: Seizure
     Dosage: 4 MG, 1X/DAY
  14. PHENOBARBITAL [Suspect]
     Active Substance: PHENOBARBITAL
     Indication: Seizure
     Dosage: UNK
  15. QUETIAPINE FUMARATE [Suspect]
     Active Substance: QUETIAPINE FUMARATE
     Indication: Seizure
     Dosage: UNK
     Route: 065
  16. QUETIAPINE FUMARATE [Suspect]
     Active Substance: QUETIAPINE FUMARATE
     Dosage: UNK
     Route: 048
  17. VALPROIC ACID [Suspect]
     Active Substance: VALPROIC ACID
     Indication: Seizure
     Dosage: 2000 MG, 1X/DAY
  18. VIGABATRIN [Suspect]
     Active Substance: VIGABATRIN
     Indication: Seizure
     Dosage: UNK
  19. VITAMIN B6 [Concomitant]
     Active Substance: PYRIDOXINE HYDROCHLORIDE
     Dosage: UNK
     Route: 065

REACTIONS (9)
  - Anticonvulsant drug level above therapeutic [Recovered/Resolved]
  - Seizure [Recovered/Resolved]
  - Drug ineffective [Recovered/Resolved]
  - Epilepsy [Recovered/Resolved]
  - Excessive eye blinking [Recovered/Resolved]
  - Gaze palsy [Recovered/Resolved]
  - Musculoskeletal stiffness [Recovered/Resolved]
  - Posture abnormal [Recovered/Resolved]
  - Status epilepticus [Recovered/Resolved]
